FAERS Safety Report 18588663 (Version 1)
Quarter: 2020Q4

REPORT INFORMATION
  Report Type: Spontaneous
  Country: US (occurrence: US)
  Receive Date: 20201207
  Receipt Date: 20201207
  Transmission Date: 20210114
  Serious: Yes (Other)
  Sender: FDA-Public Use
  Company Number: US-PFIZER INC-2020481776

PATIENT

DRUGS (2)
  1. METHOTREXATE SODIUM. [Suspect]
     Active Substance: METHOTREXATE SODIUM
     Indication: SARCOIDOSIS
  2. METHOTREXATE SODIUM. [Suspect]
     Active Substance: METHOTREXATE SODIUM
     Indication: PULMONARY SARCOIDOSIS
     Dosage: UNK
     Route: 065
     Dates: start: 2006

REACTIONS (2)
  - Electrocardiogram T wave inversion [Unknown]
  - Off label use [Unknown]

NARRATIVE: CASE EVENT DATE: 2006
